FAERS Safety Report 14293672 (Version 2)
Quarter: 2018Q1

REPORT INFORMATION
  Report Type: Report from Study
  Country: US (occurrence: US)
  Receive Date: 20171216
  Receipt Date: 20180210
  Transmission Date: 20180509
  Serious: No
  Sender: FDA-Public Use
  Company Number: PHEH2017US040037

PATIENT
  Age: 54 Year
  Sex: Male

DRUGS (2)
  1. COSENTYX [Suspect]
     Active Substance: SECUKINUMAB
     Indication: PSORIASIS
     Dosage: 300 MG, QW
     Route: 058
     Dates: start: 20171020
  2. COSENTYX [Suspect]
     Active Substance: SECUKINUMAB
     Dosage: 300 MG, QD
     Route: 058

REACTIONS (3)
  - Inappropriate schedule of drug administration [Unknown]
  - Psoriasis [Unknown]
  - Rash generalised [Recovered/Resolved]

NARRATIVE: CASE EVENT DATE: 20171122
